FAERS Safety Report 8145691-7 (Version None)
Quarter: 2012Q1

REPORT INFORMATION
  Report Type: 
  Country: None (occurrence: None)
  Receive Date: 20120217
  Receipt Date: 20111202
  Transmission Date: 20120608
  Serious: No
  Sender: FDA-Public Use
  Company Number: US-ALLERGAN-1115770US

PATIENT
  Sex: Male

DRUGS (1)
  1. TAZORAC [Suspect]
     Indication: ACNE
     Dosage: UNK
     Route: 061
     Dates: start: 20100101, end: 20111101

REACTIONS (1)
  - HAIR COLOUR CHANGES [None]
